FAERS Safety Report 4482518-9 (Version None)
Quarter: 2004Q4

REPORT INFORMATION
  Report Type: 
  Country: None (occurrence: None)
  Receive Date: 20041022
  Receipt Date: 20040414
  Transmission Date: 20050328
  Serious: No
  Sender: FDA-Public Use
  Company Number: US-GLAXOSMITHKLINE-A0507171A

PATIENT
  Sex: Female

DRUGS (2)
  1. LEXIVA [Suspect]
     Indication: HIV INFECTION
     Dosage: 700MG TWICE PER DAY
     Route: 048
  2. RITONAVIR [Concomitant]

REACTIONS (1)
  - RASH MACULO-PAPULAR [None]
